FAERS Safety Report 5704703-8 (Version None)
Quarter: 2008Q2

REPORT INFORMATION
  Report Type: 
  Country: None (occurrence: None)
  Receive Date: 20080414
  Receipt Date: 20080401
  Transmission Date: 20081010
  Serious: Yes (Hospitalization)
  Sender: FDA-Public Use
  Company Number: JP-SANOFI-SYNTHELABO-F01200800508

PATIENT
  Sex: Female
  Weight: 53 kg

DRUGS (8)
  1. GASLON N [Concomitant]
     Dosage: 4 MG
     Route: 048
     Dates: start: 20051124, end: 20071126
  2. VASOLAN [Concomitant]
     Dosage: 120 MG
     Route: 048
     Dates: start: 20051124, end: 20071126
  3. DEPAS [Concomitant]
     Dosage: 1 NG
     Route: 048
     Dates: start: 20051124, end: 20071126
  4. BASEN [Concomitant]
     Indication: DIABETES MELLITUS
     Dosage: 0.4 MG
     Route: 048
     Dates: start: 20051124, end: 20071126
  5. AMARYL [Concomitant]
     Indication: DIABETES MELLITUS
     Dosage: 0.5 MG
     Route: 048
     Dates: start: 20051124, end: 20071126
  6. AMLODIN [Concomitant]
     Indication: HYPERTENSION
     Dosage: 5 MG
     Route: 048
     Dates: start: 20051124, end: 20071126
  7. DIOVAN [Concomitant]
     Indication: HYPERTENSION
     Dosage: 40 MG
     Route: 048
     Dates: start: 20051124, end: 20071126
  8. CLOPIDOGREL [Suspect]
     Indication: TRANSIENT ISCHAEMIC ATTACK
     Dosage: 50 MG
     Route: 048
     Dates: start: 20070907, end: 20071126

REACTIONS (2)
  - ARRHYTHMIA [None]
  - CARDIAC FAILURE CONGESTIVE [None]
